FAERS Safety Report 16780746 (Version 1)
Quarter: 2019Q3

REPORT INFORMATION
  Report Type: Other
  Country: FR (occurrence: FR)
  Receive Date: 20190906
  Receipt Date: 20190906
  Transmission Date: 20191005
  Serious: Yes (Hospitalization, Other)
  Sender: FDA-Public Use
  Company Number: FR-APOTEX-2019AP021399

PATIENT
  Age: 13 Year
  Sex: Female

DRUGS (3)
  1. TERCIAN                            /00759301/ [Suspect]
     Active Substance: CYAMEMAZINE
     Indication: POISONING DELIBERATE
     Dosage: UNKNOWN (THE REST OF THE BOTTLE)
     Route: 048
     Dates: start: 20190804, end: 20190804
  2. ABILIFY [Suspect]
     Active Substance: ARIPIPRAZOLE
     Indication: POISONING DELIBERATE
     Dosage: 230 MG, SINGLE (IN TOTAL)
     Route: 048
     Dates: start: 20190804, end: 20190804
  3. PAROXETINE. [Suspect]
     Active Substance: PAROXETINE
     Indication: POISONING DELIBERATE
     Dosage: 200 MG, SINGLE (IN TOTAL)
     Route: 048
     Dates: start: 20190804, end: 20190804

REACTIONS (4)
  - Coagulation factor V level decreased [Recovered/Resolved]
  - Poisoning deliberate [Recovered/Resolved]
  - Prothrombin time ratio decreased [Recovered/Resolved]
  - Somnolence [Recovered/Resolved]

NARRATIVE: CASE EVENT DATE: 20190804
